FAERS Safety Report 6906746 (Version 25)
Quarter: 2014Q2

REPORT INFORMATION
  Report Type: Spontaneous
  Country: US (occurrence: US)
  Receive Date: 20090211
  Receipt Date: 20140520
  Transmission Date: 20141212
  Serious: Yes (Other)
  Sender: FDA-Public Use
  Company Number: PHEH2009US01399

PATIENT
  Age: 62 Year
  Sex: Female
  Weight: 67.57 kg

DRUGS (20)
  1. ZOMETA [Suspect]
     Indication: PLASMA CELL MYELOMA
     Dosage: 4 MG, QMO
     Route: 041
     Dates: start: 20070413, end: 200710
  2. TIMOLOL [Concomitant]
  3. CHEMOTHERAPEUTICS NOS [Concomitant]
  4. TOPAMAX [Concomitant]
  5. FLEXERIL [Concomitant]
  6. XALATAN [Concomitant]
  7. TERBINAFINE [Concomitant]
     Dosage: 250 MG,
  8. ITRACONAZOLE [Concomitant]
  9. SPIRONOLACTONE [Concomitant]
  10. DILTIAZEM [Concomitant]
  11. FLUTICASONE [Concomitant]
  12. ASPIRIN ^BAYER^ [Concomitant]
  13. CYCLOBENZAPRINE [Concomitant]
  14. FLONASE [Concomitant]
  15. IBUPROFEN [Concomitant]
  16. NITROGLYCERIN ^A.L.^ [Concomitant]
  17. INFLUENZA VACCINE [Concomitant]
  18. SPORANOX [Concomitant]
  19. CARBAMAZEPINE [Concomitant]
  20. TEGRETOL [Concomitant]

REACTIONS (91)
  - Osteonecrosis of jaw [Unknown]
  - Pain in jaw [Unknown]
  - Toothache [Unknown]
  - Discomfort [Unknown]
  - Pain [Unknown]
  - Scar [Unknown]
  - Mastication disorder [Unknown]
  - Emotional distress [Unknown]
  - Anxiety [Unknown]
  - Life expectancy shortened [Unknown]
  - Injury [Unknown]
  - Anhedonia [Unknown]
  - Exposed bone in jaw [Unknown]
  - Physical disability [Unknown]
  - Incontinence [Unknown]
  - Haemorrhoids [Unknown]
  - Diverticulitis [Unknown]
  - Vertigo [Unknown]
  - Amnesia [Unknown]
  - Headache [Recovering/Resolving]
  - Hypoacusis [Unknown]
  - Movement disorder [Unknown]
  - Scleritis [Unknown]
  - Ocular hyperaemia [Recovered/Resolved]
  - Vision blurred [Unknown]
  - Eye infection [Unknown]
  - Photophobia [Unknown]
  - Eyelid oedema [Recovered/Resolved]
  - Eye pain [Unknown]
  - Iris adhesions [Unknown]
  - Visual field defect [Unknown]
  - Conjunctivitis [Unknown]
  - Convulsion [Unknown]
  - Unresponsive to stimuli [Unknown]
  - Loss of consciousness [Unknown]
  - Atelectasis [Unknown]
  - Stress [Unknown]
  - Phlebolith [Unknown]
  - Anaemia [Unknown]
  - Rhinitis allergic [Unknown]
  - Osteoarthritis [Unknown]
  - Gastrooesophageal reflux disease [Unknown]
  - Mammogram abnormal [Unknown]
  - Onychomycosis [Unknown]
  - Intervertebral disc degeneration [Unknown]
  - Exostosis [Unknown]
  - Intervertebral disc space narrowing [Unknown]
  - Enostosis [Unknown]
  - Confusional state [Unknown]
  - Cervicobrachial syndrome [Unknown]
  - Skin hyperpigmentation [Unknown]
  - Vascular calcification [Unknown]
  - Peripheral vascular disorder [Unknown]
  - Coronary artery disease [Unknown]
  - Dental caries [Unknown]
  - Tooth fracture [Unknown]
  - Tooth deposit [Unknown]
  - Tooth discolouration [Unknown]
  - Gingival pain [Unknown]
  - Loose tooth [Unknown]
  - Fatigue [Unknown]
  - Cognitive disorder [Unknown]
  - Aphasia [Unknown]
  - Head injury [Unknown]
  - Stress urinary incontinence [Unknown]
  - Pilonidal cyst [Unknown]
  - Lymphadenitis [Unknown]
  - Skin lesion [Unknown]
  - Mass [Unknown]
  - Pollakiuria [Unknown]
  - Dysuria [Unknown]
  - Tooth infection [Unknown]
  - Alopecia [Unknown]
  - Rash [Unknown]
  - Peripheral swelling [Unknown]
  - Abdominal pain [Unknown]
  - Spinal osteoarthritis [Unknown]
  - Periodontal disease [Unknown]
  - Ligament sprain [Unknown]
  - Muscle strain [Unknown]
  - Scoliosis [Unknown]
  - Foot deformity [Unknown]
  - Dehydration [Unknown]
  - Salivary gland enlargement [Unknown]
  - Gingival inflammation [Unknown]
  - Tooth loss [Unknown]
  - Periodontitis [Unknown]
  - Oral disorder [Unknown]
  - Bruxism [Unknown]
  - Joint crepitation [Unknown]
  - Sinus disorder [Unknown]
